FAERS Safety Report 14779304 (Version 1)
Quarter: 2018Q2

REPORT INFORMATION
  Report Type: Report from Study
  Country: AR (occurrence: AR)
  Receive Date: 20180419
  Receipt Date: 20180419
  Transmission Date: 20180711
  Serious: Yes (Hospitalization, Other)
  Sender: FDA-Public Use
  Company Number: AR-BAYER-2018-071937

PATIENT
  Age: 42 Year
  Sex: Male

DRUGS (1)
  1. NEXAVAR [Suspect]
     Active Substance: SORAFENIB
     Indication: HEPATOCELLULAR CARCINOMA
     Dosage: 800 MG, QD
     Route: 048
     Dates: start: 201711

REACTIONS (4)
  - Nodule [Not Recovered/Not Resolved]
  - Encephalopathy [Recovering/Resolving]
  - Cholecystitis [Recovering/Resolving]
  - Pancreatic disorder [Recovering/Resolving]

NARRATIVE: CASE EVENT DATE: 20180404
